FAERS Safety Report 19404351 (Version 1)
Quarter: 2021Q2

REPORT INFORMATION
  Report Type: Spontaneous
  Country: US (occurrence: US)
  Receive Date: 20210611
  Receipt Date: 20210611
  Transmission Date: 20210717
  Serious: Yes (Life-Threatening, Hospitalization)
  Sender: FDA-Public Use
  Company Number: None

PATIENT
  Age: 47 Year
  Sex: Male
  Weight: 81 kg

DRUGS (22)
  1. LAMICTAL [Concomitant]
     Active Substance: LAMOTRIGINE
     Dates: start: 20190425
  2. METOPROLOL. [Concomitant]
     Active Substance: METOPROLOL
     Dates: start: 20190425
  3. CLARITIN [Concomitant]
     Active Substance: LORATADINE
     Dates: start: 20190425
  4. GABAPENTIN. [Concomitant]
     Active Substance: GABAPENTIN
     Dates: start: 20190425
  5. LEVOTHYROXINE. [Concomitant]
     Active Substance: LEVOTHYROXINE
     Dates: start: 20190425
  6. VENLAFAXINE ER [Concomitant]
     Active Substance: VENLAFAXINE HYDROCHLORIDE
     Dates: start: 20190425
  7. BANOPHEN [Concomitant]
     Active Substance: DIPHENHYDRAMINE HYDROCHLORIDE
     Dates: start: 20190430
  8. KEPPRA [Concomitant]
     Active Substance: LEVETIRACETAM
     Dates: start: 20190425
  9. PRAZOSIN. [Concomitant]
     Active Substance: PRAZOSIN
     Dates: start: 20190425
  10. GAMMAPLEX [Suspect]
     Active Substance: HUMAN IMMUNOGLOBULIN G
     Indication: CHRONIC INFLAMMATORY DEMYELINATING POLYRADICULONEUROPATHY
     Dosage: ?          OTHER FREQUENCY:EVERY 3 WEEKS;?
     Route: 042
     Dates: start: 20210606, end: 20210606
  11. CARBAMAZEPINE. [Concomitant]
     Active Substance: CARBAMAZEPINE
     Dates: start: 20190425
  12. CLONIDINE. [Concomitant]
     Active Substance: CLONIDINE
     Dates: start: 20190927
  13. CYCLOBENZAPRINE. [Concomitant]
     Active Substance: CYCLOBENZAPRINE
     Dates: start: 20190425
  14. DIAZEPAM. [Concomitant]
     Active Substance: DIAZEPAM
     Dates: start: 20190425
  15. AMLODIPINE [Concomitant]
     Active Substance: AMLODIPINE BESYLATE
     Dates: start: 20190425
  16. CLOPIDOGREL [Concomitant]
     Active Substance: CLOPIDOGREL BISULFATE
     Dates: start: 20190425
  17. NORCO [Concomitant]
     Active Substance: ACETAMINOPHEN\HYDROCODONE BITARTRATE
     Dates: start: 20190425
  18. ATORVASTATIN [Concomitant]
     Active Substance: ATORVASTATIN
     Dates: start: 20190425
  19. GEODON [Concomitant]
     Active Substance: ZIPRASIDONE HYDROCHLORIDE\ZIPRASIDONE MESYLATE
     Dates: start: 20190419
  20. HEPARIN FLUSH [Concomitant]
     Active Substance: HEPARIN SODIUM
     Dates: start: 20190430
  21. HYDRALAZINE [Concomitant]
     Active Substance: HYDRALAZINE HYDROCHLORIDE
     Dates: start: 20190425
  22. VIMPAT [Concomitant]
     Active Substance: LACOSAMIDE
     Dates: start: 20190425

REACTIONS (2)
  - Carotid artery dissection [None]
  - Unresponsive to stimuli [None]

NARRATIVE: CASE EVENT DATE: 20210606
